FAERS Safety Report 6470094-0 (Version None)
Quarter: 2009Q4

REPORT INFORMATION
  Report Type: 
  Country: None (occurrence: None)
  Receive Date: 20091203
  Receipt Date: 20081009
  Transmission Date: 20100525
  Serious: Yes (Death, Congenital Anomaly)
  Sender: FDA-Public Use
  Company Number: US-ELI_LILLY_AND_COMPANY-US200712004531

PATIENT

DRUGS (7)
  1. PROZAC [Suspect]
     Dosage: 20 MG, DAILY (1/D)
     Route: 064
     Dates: start: 20060201
  2. PRENATAL [Concomitant]
     Dosage: UNK, UNKNOWN
     Route: 065
  3. AMBIEN [Concomitant]
     Dosage: 10 MG, UNKNOWN
     Route: 065
  4. DULCOLAX [Concomitant]
     Dosage: UNK, AS NEEDED
     Route: 065
  5. IRON [Concomitant]
     Dosage: UNK, UNKNOWN
     Route: 065
  6. BETAMETHASONE DIPROPIONATE [Concomitant]
     Dosage: 45 MG, UNKNOWN
     Route: 065
  7. IBUPROFEN [Concomitant]
     Dosage: UNK, UNKNOWN
     Route: 065

REACTIONS (12)
  - APGAR SCORE LOW [None]
  - ASCITES [None]
  - CAESAREAN SECTION [None]
  - CARDIAC ARREST [None]
  - CYTOGENETIC ABNORMALITY [None]
  - DIGEORGE'S SYNDROME [None]
  - DRUG EXPOSURE DURING PREGNANCY [None]
  - FALLOT'S TETRALOGY [None]
  - NEONATAL RESPIRATORY DISTRESS SYNDROME [None]
  - OPERATIVE HAEMORRHAGE [None]
  - PULMONARY HAEMORRHAGE [None]
  - PULMONARY HYPERTENSION [None]
